FAERS Safety Report 24604300 (Version 1)
Quarter: 2024Q4

REPORT INFORMATION
  Report Type: Spontaneous
  Country: US (occurrence: None)
  Receive Date: 20241110
  Receipt Date: 20241110
  Transmission Date: 20250114
  Serious: Yes (Other)
  Sender: Public
  Company Number: None

PATIENT
  Age: 69 Year
  Sex: Male
  Weight: 88 kg

DRUGS (1)
  1. TNKASE [Suspect]
     Active Substance: TENECTEPLASE
     Indication: Ischaemic stroke
     Dosage: 22 MG ONCE INTRAVENOUS BOLUS ?
     Route: 040
     Dates: start: 20240903

REACTIONS (3)
  - Swelling face [None]
  - Lip swelling [None]
  - Urticaria [None]

NARRATIVE: CASE EVENT DATE: 20240903
